FAERS Safety Report 4538292-0 (Version None)
Quarter: 2004Q4

REPORT INFORMATION
  Report Type: 
  Country: None (occurrence: None)
  Receive Date: 20041221
  Receipt Date: 20041213
  Transmission Date: 20050328
  Serious: Yes (Hospitalization)
  Sender: FDA-Public Use
  Company Number: 2004AP06262

PATIENT
  Age: 63 Year
  Sex: Male

DRUGS (2)
  1. SEROQUEL [Suspect]
     Dosage: 25 MG DAILY PO
     Route: 048
     Dates: start: 20041014
  2. SEROQUEL [Suspect]
     Dosage: 250 MG DAILY PO
     Route: 048
     Dates: end: 20041110

REACTIONS (4)
  - BLOOD PRESSURE DECREASED [None]
  - INCREASED APPETITE [None]
  - LIVER DISORDER [None]
  - PYREXIA [None]
